FAERS Safety Report 8476411-4 (Version None)
Quarter: 2012Q2

REPORT INFORMATION
  Report Type: 
  Country: None (occurrence: None)
  Receive Date: 20120628
  Receipt Date: 20120625
  Transmission Date: 20120825
  Serious: Yes (Congenital Anomaly)
  Sender: FDA-Public Use
  Company Number: GXKR2012DE002072

PATIENT

DRUGS (3)
  1. CITALOPRAM HYDROBROMIDE [Suspect]
     Dosage: MATERNAL DOSE: 20 [MG/D ]
     Route: 064
  2. RITALIN [Suspect]
     Dosage: MATERNAL DOSE: 20 [MG/D ]/ IRREGULAR INTAKE, BEGIN 1 YEAR AGO.
     Route: 064
  3. FOLIC ACID [Concomitant]
     Dosage: MATERNAL DOSE: 0.4 [MG/D ]
     Route: 064

REACTIONS (2)
  - CLEFT LIP AND PALATE [None]
  - FOETAL EXPOSURE DURING PREGNANCY [None]
